FAERS Safety Report 11428227 (Version 2)
Quarter: 2015Q3

REPORT INFORMATION
  Report Type: Report from Study
  Country: US (occurrence: US)
  Receive Date: 20150828
  Receipt Date: 20150909
  Transmission Date: 20151125
  Serious: No
  Sender: FDA-Public Use
  Company Number: US-AMGEN-USASP2015086137

PATIENT
  Age: 58 Year
  Sex: Female

DRUGS (1)
  1. ENBREL [Suspect]
     Active Substance: ETANERCEPT
     Indication: RHEUMATOID ARTHRITIS
     Dosage: 50 MG, QWK
     Route: 065
     Dates: start: 20150818

REACTIONS (15)
  - Fatigue [Unknown]
  - Rash [Unknown]
  - Pain [Unknown]
  - Injection site pain [Unknown]
  - Poor quality sleep [Not Recovered/Not Resolved]
  - Musculoskeletal pain [Unknown]
  - Flushing [Not Recovered/Not Resolved]
  - Blister [Unknown]
  - Malaise [Unknown]
  - Hot flush [Not Recovered/Not Resolved]
  - Arthralgia [Unknown]
  - Nausea [Unknown]
  - Tongue disorder [Unknown]
  - Glossodynia [Unknown]
  - Nasal disorder [Unknown]

NARRATIVE: CASE EVENT DATE: 201508
